FAERS Safety Report 8295136-1 (Version None)
Quarter: 2012Q2

REPORT INFORMATION
  Report Type: 
  Country: None (occurrence: None)
  Receive Date: 20120418
  Receipt Date: 20120404
  Transmission Date: 20120825
  Serious: Yes (Hospitalization, Other)
  Sender: FDA-Public Use
  Company Number: BR-PFIZER INC-2012093793

PATIENT
  Age: 82 Year
  Sex: Female

DRUGS (5)
  1. AMLODIPINE BESYLATE AND OLMESARTAN MEDOXOMIL [Suspect]
     Indication: HYPERTENSION
     Dosage: 20/5 MG, 1X/DAY
     Route: 048
     Dates: start: 20111001
  2. DILTIAZEM [Suspect]
     Dosage: 100 MG, UNK
     Route: 048
     Dates: end: 20111001
  3. PANTOPRAZOLE [Concomitant]
     Dosage: 40 MG, UNK
     Route: 065
  4. SPIRONOLACTONE [Suspect]
     Dosage: UNK
     Route: 048
     Dates: end: 20111001
  5. LEVOTHYROXINE SODIUM [Concomitant]
     Dosage: 50 MCG
     Route: 065

REACTIONS (5)
  - KNEE ARTHROPLASTY [None]
  - FLUID IMBALANCE [None]
  - HAEMORRHAGE [None]
  - HYPOTENSION [None]
  - OEDEMA PERIPHERAL [None]
